FAERS Safety Report 12334501 (Version 1)
Quarter: 2016Q2

REPORT INFORMATION
  Report Type: Spontaneous
  Country: CA (occurrence: CA)
  Receive Date: 20160504
  Receipt Date: 20160504
  Transmission Date: 20160815
  Serious: Yes (Other)
  Sender: FDA-Public Use
  Company Number: CA-PFIZER INC-2016239317

PATIENT
  Sex: Female

DRUGS (34)
  1. ENBREL [Suspect]
     Active Substance: ETANERCEPT
     Indication: RHEUMATOID ARTHRITIS
     Dosage: 25 MG, 2 TIMES/WK
  2. OMNARIS [Concomitant]
     Active Substance: CICLESONIDE
     Dosage: UNK
  3. RITUXAN [Concomitant]
     Active Substance: RITUXIMAB
     Dosage: UNK
  4. ARAVA [Suspect]
     Active Substance: LEFLUNOMIDE
     Indication: RHEUMATOID ARTHRITIS
     Dosage: 20 MG, QD
     Route: 065
  5. KINERET [Concomitant]
     Active Substance: ANAKINRA
     Dosage: UNK
  6. NORFLEX [Concomitant]
     Active Substance: ORPHENADRINE CITRATE
     Dosage: UNK
  7. SYNTHROID [Concomitant]
     Active Substance: LEVOTHYROXINE SODIUM
     Dosage: UNK
  8. VAGIFEM [Concomitant]
     Active Substance: ESTRADIOL
     Dosage: UNK
  9. KADIAN [Concomitant]
     Active Substance: MORPHINE SULFATE
     Dosage: UNK
  10. ACETAMINOPHEN. [Concomitant]
     Active Substance: ACETAMINOPHEN
     Dosage: UNK
  11. ENABLEX [Concomitant]
     Active Substance: DARIFENACIN HYDROBROMIDE
     Dosage: UNK
  12. SODIUM AUROTHIOMALATE [Suspect]
     Active Substance: GOLD SODIUM THIOMALATE
     Dosage: UNK
     Route: 065
  13. LOPERAMIDE [Concomitant]
     Active Substance: LOPERAMIDE
     Dosage: UNK
  14. RESTASIS [Concomitant]
     Active Substance: CYCLOSPORINE
     Dosage: UNK
  15. URISPAS [Concomitant]
     Active Substance: FLAVOXATE HYDROCHLORIDE
     Dosage: 200 MG, UNK
  16. CORTISONE [Concomitant]
     Active Substance: CORTISONE\HYDROCORTISONE
     Dosage: UNK
  17. METHOTREXATE SODIUM. [Suspect]
     Active Substance: METHOTREXATE SODIUM
     Dosage: 25 MG, QWK
  18. ACTEMRA [Suspect]
     Active Substance: TOCILIZUMAB
     Dosage: UNK
     Route: 065
  19. ORENCIA [Suspect]
     Active Substance: ABATACEPT
     Dosage: UNK
     Route: 065
  20. TRIMETHOPRIM. [Concomitant]
     Active Substance: TRIMETHOPRIM
     Dosage: UNK
  21. DILAUDID [Concomitant]
     Active Substance: HYDROMORPHONE HYDROCHLORIDE
     Dosage: UNK
  22. PLAQUENIL [Suspect]
     Active Substance: HYDROXYCHLOROQUINE SULFATE
     Dosage: 200 MG, BID
     Route: 065
  23. BENADRYL [Concomitant]
     Active Substance: DIPHENHYDRAMINE HYDROCHLORIDE
     Dosage: UNK
  24. REMICADE [Suspect]
     Active Substance: INFLIXIMAB
     Dosage: 200 MG, UNK
     Route: 065
  25. ATIVAN [Concomitant]
     Active Substance: LORAZEPAM
     Dosage: UNK
  26. KENALOG [Concomitant]
     Active Substance: TRIAMCINOLONE ACETONIDE
     Dosage: UNK
  27. OXYNEO [Concomitant]
     Active Substance: OXYCODONE
     Dosage: UNK
  28. XELJANZ [Suspect]
     Active Substance: TOFACITINIB CITRATE
     Dosage: UNK
  29. HUMIRA [Suspect]
     Active Substance: ADALIMUMAB
     Dosage: 200 MG, BID
     Route: 065
  30. HYDROMORPHONE [Concomitant]
     Active Substance: HYDROMORPHONE
     Dosage: UNK
  31. LASIX [Concomitant]
     Active Substance: FUROSEMIDE
     Dosage: UNK
  32. PANTOLOC [Concomitant]
     Active Substance: PANTOPRAZOLE SODIUM
     Dosage: UNK
  33. CODEINE [Concomitant]
     Active Substance: CODEINE
     Dosage: UNK
  34. DEXAMETHASONE. [Concomitant]
     Active Substance: DEXAMETHASONE
     Dosage: UNK

REACTIONS (12)
  - Leukopenia [Unknown]
  - Infection [Unknown]
  - Anaemia [Unknown]
  - Soft tissue disorder [Unknown]
  - Peripheral swelling [Unknown]
  - Herpes zoster [Unknown]
  - Arthritis [Unknown]
  - Liver function test abnormal [Unknown]
  - Blood cholesterol increased [Unknown]
  - Fibromyalgia [Unknown]
  - Joint swelling [Unknown]
  - Synovitis [Unknown]
